FAERS Safety Report 5279556-5 (Version None)
Quarter: 2007Q1

REPORT INFORMATION
  Report Type: 
  Country: None (occurrence: None)
  Receive Date: 20070328
  Receipt Date: 20070316
  Transmission Date: 20070707
  Serious: Yes (Other)
  Sender: FDA-Public Use
  Company Number: FI-PFIZER INC-2007021028

PATIENT
  Sex: Female

DRUGS (13)
  1. LYRICA [Suspect]
     Indication: PAIN
     Route: 048
  2. LIBRAX [Concomitant]
     Route: 048
  3. NORITREN [Concomitant]
     Route: 048
  4. MIRTAZAPINE [Concomitant]
     Route: 048
  5. DUREKAL [Concomitant]
     Route: 048
  6. IDOFORM [Concomitant]
     Route: 048
  7. ATENOL [Concomitant]
     Route: 048
  8. OMEPRAZOLE [Concomitant]
     Route: 048
  9. VITAMIN CAP [Concomitant]
  10. ALLERGY MEDICATION [Concomitant]
  11. LITALGIN [Concomitant]
  12. NSAID'S [Concomitant]
  13. ESOMEPRAZOLE MAGNESIUM [Concomitant]
     Route: 048

REACTIONS (3)
  - DIZZINESS [None]
  - FATIGUE [None]
  - HYPERGLYCAEMIA [None]
